FAERS Safety Report 7250701-5 (Version None)
Quarter: 2011Q1

REPORT INFORMATION
  Report Type: 
  Country: None (occurrence: None)
  Receive Date: 20110128
  Receipt Date: 20110119
  Transmission Date: 20110831
  Serious: Yes (Other)
  Sender: FDA-Public Use
  Company Number: PHHY2010CA80129

PATIENT
  Sex: Male

DRUGS (1)
  1. ZOMETA [Suspect]
     Indication: PROSTATE CANCER
     Dosage: 4 MG, Q10 WEEKS
     Dates: start: 20101122, end: 20101122

REACTIONS (10)
  - PARAESTHESIA [None]
  - BACK PAIN [None]
  - FALL [None]
  - NEOPLASM MALIGNANT [None]
  - MALAISE [None]
  - OEDEMA PERIPHERAL [None]
  - METASTASES TO LIVER [None]
  - CONSTIPATION [None]
  - RENAL INJURY [None]
  - RENAL FUNCTION TEST ABNORMAL [None]
